FAERS Safety Report 6029171-0 (Version None)
Quarter: 2009Q1

REPORT INFORMATION
  Report Type: 
  Country: None (occurrence: None)
  Receive Date: 20090102
  Receipt Date: 20081218
  Transmission Date: 20090719
  Serious: Yes (Hospitalization, Other)
  Sender: FDA-Public Use
  Company Number: 2008-182154-NL

PATIENT
  Age: 46 Year
  Sex: Female
  Weight: 63.5 kg

DRUGS (4)
  1. NUVARING [Suspect]
     Dates: start: 20040101, end: 20070325
  2. DIETARY SUPPLEMENTS (VITAMIN B AND C) [Concomitant]
  3. ADVIL LIQUI-GELS [Concomitant]
  4. LAMISIL [Concomitant]

REACTIONS (7)
  - CEREBRAL HAEMORRHAGE [None]
  - CEREBRAL INFARCTION [None]
  - CONVULSION [None]
  - HEADACHE [None]
  - INTRACRANIAL VENOUS SINUS THROMBOSIS [None]
  - LETHARGY [None]
  - SUBARACHNOID HAEMORRHAGE [None]
